FAERS Safety Report 5517612-4 (Version None)
Quarter: 2007Q4

REPORT INFORMATION
  Report Type: 
  Country: None (occurrence: None)
  Receive Date: 20071114
  Receipt Date: 20071102
  Transmission Date: 20080405
  Serious: Yes (Other)
  Sender: FDA-Public Use
  Company Number: US-PFIZER INC-2007093282

PATIENT
  Sex: Female
  Weight: 50 kg

DRUGS (1)
  1. LYRICA [Suspect]
     Indication: NEURALGIA

REACTIONS (3)
  - COLECTOMY [None]
  - CONSTIPATION [None]
  - DIARRHOEA [None]
